FAERS Safety Report 16217622 (Version 1)
Quarter: 2019Q2

REPORT INFORMATION
  Report Type: Spontaneous
  Country: US (occurrence: US)
  Receive Date: 20190419
  Receipt Date: 20190419
  Transmission Date: 20190711
  Serious: Yes (Hospitalization, Other)
  Sender: FDA-Public Use
  Company Number: US-SA-2019SA109539

PATIENT
  Age: 30 Year
  Sex: Female

DRUGS (1)
  1. DUPIXENT [Suspect]
     Active Substance: DUPILUMAB
     Indication: ASTHMA
     Dosage: 300 MG, QOW
     Route: 058
     Dates: start: 20190312

REACTIONS (11)
  - Malaise [Unknown]
  - Influenza [Unknown]
  - Hypersensitivity [Unknown]
  - Injection site pain [Unknown]
  - Diabetes mellitus [Unknown]
  - Sensitisation [Unknown]
  - Dizziness [Unknown]
  - Blood glucose abnormal [Unknown]
  - Nasopharyngitis [Unknown]
  - Pain in extremity [Unknown]
  - Arthralgia [Unknown]

NARRATIVE: CASE EVENT DATE: 20190312
